FAERS Safety Report 9578725 (Version 1)
Quarter: 2013Q4

REPORT INFORMATION
  Report Type: Spontaneous
  Country: US (occurrence: US)
  Receive Date: 20131001
  Receipt Date: 20131001
  Transmission Date: 20140711
  Serious: No
  Sender: FDA-Public Use
  Company Number: US-AMGEN-USASP2013014935

PATIENT
  Age: 52 Year
  Sex: Female

DRUGS (2)
  1. ENBREL [Suspect]
     Indication: RHEUMATOID ARTHRITIS
     Dosage: 50 MG, QWK
     Dates: start: 20121125
  2. METHOTREXATE [Concomitant]
     Dosage: 0.8 ML, QWK
     Route: 058
     Dates: start: 2010

REACTIONS (2)
  - Upper respiratory tract infection [Recovered/Resolved]
  - Tooth abscess [Recovered/Resolved]
